FAERS Safety Report 12383809 (Version 2)
Quarter: 2016Q3

REPORT INFORMATION
  Report Type: Spontaneous
  Country: US (occurrence: US)
  Receive Date: 20160519
  Receipt Date: 20160728
  Transmission Date: 20161109
  Serious: Yes (Other)
  Sender: FDA-Public Use
  Company Number: US-BEH-2016062844

PATIENT
  Age: 68 Year
  Sex: Female
  Weight: 55.34 kg

DRUGS (13)
  1. DIPHENHYDRAMINE. [Concomitant]
     Active Substance: DIPHENHYDRAMINE
  2. OMEPRAZOLE. [Concomitant]
     Active Substance: OMEPRAZOLE
  3. ACETAMINOPHEN. [Concomitant]
     Active Substance: ACETAMINOPHEN
  4. L-M-X [Concomitant]
  5. PREDNISONE. [Concomitant]
     Active Substance: PREDNISONE
  6. EPIPEN [Concomitant]
     Active Substance: EPINEPHRINE
  7. PRIVIGEN [Suspect]
     Active Substance: HUMAN IMMUNOGLOBULIN G
     Indication: IMMUNODEFICIENCY COMMON VARIABLE
     Route: 042
  8. SODIUM CHLORIDE. [Concomitant]
     Active Substance: SODIUM CHLORIDE
  9. VITAMIN D2 [Concomitant]
     Active Substance: ERGOCALCIFEROL
  10. PRIVIGEN [Suspect]
     Active Substance: HUMAN IMMUNOGLOBULIN G
     Indication: CHRONIC SINUSITIS
     Dosage: 45 G, Q3W
     Route: 042
     Dates: start: 20160323
  11. AZITHROMYCIN ANHYDROUS. [Concomitant]
     Active Substance: AZITHROMYCIN ANHYDROUS
  12. HEPARIN [Concomitant]
     Active Substance: HEPARIN SODIUM
  13. URSODIOL. [Concomitant]
     Active Substance: URSODIOL

REACTIONS (1)
  - Biopsy liver [Unknown]

NARRATIVE: CASE EVENT DATE: 20160323
